FAERS Safety Report 4991530-2 (Version None)
Quarter: 2006Q2

REPORT INFORMATION
  Report Type: 
  Country: None (occurrence: None)
  Receive Date: 20060502
  Receipt Date: 20060418
  Transmission Date: 20061013
  Serious: Yes (Other)
  Sender: FDA-Public Use
  Company Number: GXKR2006US02095

PATIENT
  Age: 46 Year
  Sex: Male

DRUGS (2)
  1. LORAZEPAM [Suspect]
     Indication: ACUTE PSYCHOSIS
     Dosage: 2 MG, INTRAMUSCULAR
     Route: 030
  2. OLANZAPINE [Suspect]
     Indication: ACUTE PSYCHOSIS
     Dosage: 10 MG, INTRAMUSCULAR
     Route: 030

REACTIONS (5)
  - AGITATION [None]
  - DIZZINESS [None]
  - DRUG INTERACTION [None]
  - HYPOTENSION [None]
  - LETHARGY [None]
